FAERS Safety Report 13819188 (Version 3)
Quarter: 2017Q4

REPORT INFORMATION
  Report Type: Spontaneous
  Country: US (occurrence: US)
  Receive Date: 20170801
  Receipt Date: 20171102
  Transmission Date: 20180320
  Serious: Yes (Other)
  Sender: FDA-Public Use
  Company Number: US-JNJFOC-20170719879

PATIENT
  Age: 72 Year
  Sex: Male
  Weight: 74.84 kg

DRUGS (14)
  1. XARELTO [Suspect]
     Active Substance: RIVAROXABAN
     Indication: THROMBOSIS
     Route: 048
     Dates: start: 2015
  2. QUERCETIN [Concomitant]
     Active Substance: QUERCETIN
     Route: 065
  3. LISINOPRIL. [Concomitant]
     Active Substance: LISINOPRIL
     Route: 065
  4. CARNOSINE [Concomitant]
     Active Substance: CARNOSINE
     Route: 065
  5. ACETYL L CARNITINE [Concomitant]
     Indication: CEREBRAL DISORDER
     Route: 065
  6. CARNITINE [Concomitant]
     Active Substance: CARNITINE
     Indication: CARDIOVASCULAR DISORDER
     Route: 065
  7. MAGNESIUM CALCIUM [Concomitant]
     Active Substance: CALCIUM CARBONATE\MAGNESIUM CARBONATE
     Route: 065
  8. VITAMIN C [Concomitant]
     Active Substance: ASCORBIC ACID
     Route: 065
  9. COREG [Concomitant]
     Active Substance: CARVEDILOL
     Route: 065
  10. COQ10 [Concomitant]
     Active Substance: UBIDECARENONE
     Route: 065
  11. FOLIC ACID. [Concomitant]
     Active Substance: FOLIC ACID
     Route: 065
  12. VITAMIN D3 [Concomitant]
     Active Substance: CHOLECALCIFEROL
     Route: 065
  13. VITAMIN D [Concomitant]
     Active Substance: CHOLECALCIFEROL
     Route: 065
  14. CARNITINE [Concomitant]
     Active Substance: CARNITINE
     Indication: MUSCLE DISORDER
     Route: 065

REACTIONS (2)
  - Prostate cancer [Not Recovered/Not Resolved]
  - Therapeutic response unexpected [Unknown]

NARRATIVE: CASE EVENT DATE: 201706
